FAERS Safety Report 25867645 (Version 1)
Quarter: 2025Q4

REPORT INFORMATION
  Report Type: Spontaneous
  Country: US (occurrence: US)
  Receive Date: 20251001
  Receipt Date: 20251001
  Transmission Date: 20260118
  Serious: No
  Sender: AUROBINDO
  Company Number: US-AUROBINDO-AUR-APL-2025-028860

PATIENT
  Age: 86 Year
  Sex: Female
  Weight: 68.038 kg

DRUGS (1)
  1. OMEPRAZOLE [Suspect]
     Active Substance: OMEPRAZOLE
     Indication: Gastrooesophageal reflux disease
     Dosage: 4 PILLS OVER A TWO-WEEK  PERIOD (BETWEEN 05/08/2025 AND 05/15/2025)
     Route: 048

REACTIONS (3)
  - Product with quality issue administered [Unknown]
  - Product quality issue [Unknown]
  - Manufacturing issue [Unknown]

NARRATIVE: CASE EVENT DATE: 20250508
